FAERS Safety Report 8273151-1 (Version None)
Quarter: 2012Q2

REPORT INFORMATION
  Report Type: 
  Country: None (occurrence: None)
  Receive Date: 20120411
  Receipt Date: 20120404
  Transmission Date: 20120825
  Serious: Yes (Hospitalization, Other)
  Sender: FDA-Public Use
  Company Number: JP-VERTEX PHARMACEUTICALS INC.-AE-2012-002366

PATIENT
  Age: 49 Year
  Sex: Male

DRUGS (10)
  1. RIBAVIRIN [Concomitant]
     Indication: HEPATITIS C
     Route: 048
  2. SODIUM FERROUS CITRATE [Concomitant]
  3. INTERFERON [Concomitant]
     Indication: HEPATITIS C
     Route: 058
  4. POLAPREZINC [Concomitant]
  5. LIVALO [Concomitant]
  6. TELAVIC (TELAPREVIR) [Suspect]
     Indication: HEPATITIS C
     Route: 048
     Dates: start: 20111220, end: 20120227
  7. LANSOPRAZOLE [Concomitant]
  8. LORATADINE [Concomitant]
  9. VALPROATE SODIUM [Concomitant]
  10. ETHYL ICOSAPENTATE [Concomitant]

REACTIONS (3)
  - DECREASED APPETITE [None]
  - DRUG ERUPTION [None]
  - ANAEMIA [None]
